FAERS Safety Report 12441976 (Version 2)
Quarter: 2016Q2

REPORT INFORMATION
  Report Type: Spontaneous
  Country: US (occurrence: US)
  Receive Date: 20160607
  Receipt Date: 20160628
  Transmission Date: 20160815
  Serious: Yes (Life-Threatening, Hospitalization, Other)
  Sender: FDA-Public Use
  Company Number: US-WATSON-2016-11702

PATIENT
  Age: 28 Year
  Sex: Female

DRUGS (9)
  1. CIMETIDINE (WATSON LABORATORIES) [Suspect]
     Active Substance: CIMETIDINE
     Indication: ULCER
     Dosage: 2000 MG, DAILY
     Route: 048
  2. LOPERAMIDE (UNKNOWN) [Interacting]
     Active Substance: LOPERAMIDE
     Indication: DRUG WITHDRAWAL SYNDROME
     Dosage: 400-600 MG DAILY  IN THE FORM OF 2 MG TABLETS
     Route: 048
  3. CIMETIDINE (WATSON LABORATORIES) [Interacting]
     Active Substance: CIMETIDINE
     Indication: DRUG WITHDRAWAL SYNDROME
  4. CIMETIDINE (WATSON LABORATORIES) [Interacting]
     Active Substance: CIMETIDINE
     Indication: DRUG ABUSE
  5. CIMETIDINE (WATSON LABORATORIES) [Interacting]
     Active Substance: CIMETIDINE
     Indication: OVERDOSE
  6. LOPERAMIDE (UNKNOWN) [Interacting]
     Active Substance: LOPERAMIDE
     Indication: OVERDOSE
  7. GABAPENTIN. [Concomitant]
     Active Substance: GABAPENTIN
     Indication: DRUG WITHDRAWAL SYNDROME
     Dosage: UNK
     Route: 065
  8. MORPHINE [Concomitant]
     Active Substance: MORPHINE
     Indication: PRODUCT USED FOR UNKNOWN INDICATION
     Dosage: UNK
     Route: 065
  9. LOPERAMIDE (UNKNOWN) [Interacting]
     Active Substance: LOPERAMIDE
     Indication: DRUG ABUSE

REACTIONS (16)
  - Torsade de pointes [Recovered/Resolved]
  - Overdose [Recovered/Resolved]
  - Arrhythmia [Recovered/Resolved]
  - Electrocardiogram QT prolonged [Recovered/Resolved]
  - Electrocardiogram T wave inversion [Recovered/Resolved]
  - Self-medication [Recovered/Resolved]
  - Drug abuse [Recovered/Resolved]
  - Syncope [Recovered/Resolved]
  - Myoclonus [Recovered/Resolved]
  - Atrioventricular block first degree [Recovered/Resolved]
  - QRS axis abnormal [Recovered/Resolved]
  - Electrocardiogram T wave amplitude decreased [Recovered/Resolved]
  - Electrocardiogram QRS complex prolonged [Recovered/Resolved]
  - Cardiac murmur [Recovered/Resolved]
  - Sinus bradycardia [Recovered/Resolved]
  - Drug interaction [Recovered/Resolved]
